FAERS Safety Report 9351935 (Version 1)
Quarter: 2013Q2

REPORT INFORMATION
  Report Type: Spontaneous
  Country: JP (occurrence: JP)
  Receive Date: 20130617
  Receipt Date: 20130617
  Transmission Date: 20140414
  Serious: Yes (Hospitalization)
  Sender: FDA-Public Use
  Company Number: JP-GLAXOSMITHKLINE-B0899929A

PATIENT
  Age: 52 Year
  Sex: Male

DRUGS (7)
  1. OMEGA-3-ACID ETHYL ESTERS [Suspect]
     Indication: HYPERLIPIDAEMIA
     Dosage: 2000MG PER DAY
     Route: 048
     Dates: start: 20130123, end: 20130515
  2. JANUVIA [Concomitant]
     Dosage: 50MG PER DAY
     Route: 048
  3. URSO [Concomitant]
     Dosage: 300MG PER DAY
     Route: 048
  4. VOGLIBOSE [Concomitant]
     Dosage: .9MG PER DAY
     Route: 048
  5. ALLOZYM [Concomitant]
     Dosage: 300MG PER DAY
     Route: 048
  6. ATORVASTATIN CALCIUM [Concomitant]
     Dosage: 10MG PER DAY
     Route: 048
  7. LOSARTAN POTASSIUM [Concomitant]
     Dosage: 50MG PER DAY
     Route: 048

REACTIONS (1)
  - Hyperglycaemia [Recovering/Resolving]
